FAERS Safety Report 8958390 (Version 2)
Quarter: 2012Q4

REPORT INFORMATION
  Report Type: 
  Country: JP (occurrence: JP)
  Receive Date: 20121210
  Receipt Date: 20121228
  Transmission Date: 20130627
  Serious: Yes (Hospitalization)
  Sender: FDA-Public Use
  Company Number: JP-GLAXOSMITHKLINE-B0848884A

PATIENT
  Age: 79 Year
  Sex: Female
  Weight: 65 kg

DRUGS (3)
  1. ARIXTRA [Suspect]
     Indication: DEEP VEIN THROMBOSIS
     Dosage: 1IUAX Per day
     Route: 058
     Dates: start: 20121115, end: 20121121
  2. WARFARIN [Suspect]
     Indication: DEEP VEIN THROMBOSIS
     Dosage: 5MG Per day
     Route: 048
     Dates: start: 20120807, end: 20121121
  3. LOW MOLECULAR WEIGHT HEPARIN [Concomitant]

REACTIONS (4)
  - Haemorrhage [Recovering/Resolving]
  - Abdominal pain [Recovering/Resolving]
  - Abdominal wall haematoma [Unknown]
  - Haemoglobin decreased [Recovered/Resolved]
